FAERS Safety Report 18962562 (Version 1)
Quarter: 2021Q1

REPORT INFORMATION
  Report Type: Spontaneous
  Country: US (occurrence: US)
  Receive Date: 20210303
  Receipt Date: 20210303
  Transmission Date: 20210420
  Serious: No
  Sender: FDA-Public Use
  Company Number: US-ORGANON-1111USA02496

PATIENT
  Sex: Female
  Weight: 65.32 kg

DRUGS (3)
  1. LIPITOR [Concomitant]
     Active Substance: ATORVASTATIN CALCIUM
     Indication: HYPERLIPIDAEMIA
     Dosage: 10 MG, QD
     Dates: start: 1990, end: 2007
  2. FOSAMAX [Suspect]
     Active Substance: ALENDRONATE SODIUM
     Indication: OSTEOPOROSIS
     Dosage: UNK
     Route: 048
  3. FOSAMAX PLUS D [Suspect]
     Active Substance: ALENDRONATE SODIUM\CHOLECALCIFEROL
     Indication: OSTEOPOROSIS
     Dosage: 70 MG, UNK
     Route: 048
     Dates: start: 2005, end: 2007

REACTIONS (25)
  - Gastrooesophageal reflux disease [Unknown]
  - Osteoarthritis [Unknown]
  - Paraesthesia [Unknown]
  - Adverse drug reaction [Unknown]
  - Dysphagia [Unknown]
  - Pain in extremity [Unknown]
  - Bruxism [Unknown]
  - Arthropathy [Unknown]
  - Cystocele [Unknown]
  - Pain in jaw [Unknown]
  - Joint range of motion decreased [Unknown]
  - Headache [Unknown]
  - Pelvic prolapse [Unknown]
  - Uterine prolapse [Unknown]
  - Hypoaesthesia [Unknown]
  - Rash [Unknown]
  - Stress [Unknown]
  - Hyporeflexia [Unknown]
  - Nervous system disorder [Unknown]
  - Jaw disorder [Unknown]
  - Osteopenia [Unknown]
  - Jaw clicking [Unknown]
  - Temporomandibular joint syndrome [Unknown]
  - Sinus congestion [Unknown]
  - Breast mass [Unknown]

NARRATIVE: CASE EVENT DATE: 200506
